FAERS Safety Report 7404018-6 (Version None)
Quarter: 2011Q2

REPORT INFORMATION
  Report Type: 
  Country: None (occurrence: None)
  Receive Date: 20110408
  Receipt Date: 20110311
  Transmission Date: 20111010
  Serious: Yes (Other)
  Sender: FDA-Public Use
  Company Number: US-BAYER-201041624NA

PATIENT
  Age: 25 Year
  Sex: Female
  Weight: 82 kg

DRUGS (3)
  1. YAZ [Suspect]
     Indication: ACNE
  2. OCELLA [Suspect]
     Indication: ACNE
     Dosage: UNK
  3. YASMIN [Suspect]
     Indication: ACNE

REACTIONS (4)
  - CHOLECYSTITIS [None]
  - PAIN [None]
  - INJURY [None]
  - CHOLECYSTECTOMY [None]
